FAERS Safety Report 5332821-5 (Version None)
Quarter: 2007Q2

REPORT INFORMATION
  Report Type: 
  Country: None (occurrence: None)
  Receive Date: 20070523
  Receipt Date: 20070511
  Transmission Date: 20071010
  Serious: Yes (Other)
  Sender: FDA-Public Use
  Company Number: SE-PFIZER INC-2007040388

PATIENT
  Sex: Male

DRUGS (10)
  1. PREDNISOLONE [Suspect]
     Dosage: DAILY DOSE:30MG
     Route: 048
  2. CELLCEPT [Suspect]
     Dosage: DAILY DOSE:2GRAM
     Route: 048
  3. METOPROLOL SUCCINATE [Concomitant]
  4. KALCITENA [Concomitant]
  5. ENALAPRIL [Concomitant]
  6. SIMVASTATIN [Concomitant]
  7. DUROFERON [Concomitant]
  8. ETALPHA [Concomitant]
  9. ALLOPURINOL ^NORDIC^ [Concomitant]
  10. SANDIMMUNE [Concomitant]

REACTIONS (2)
  - ATRIAL FIBRILLATION [None]
  - FLUID OVERLOAD [None]
